FAERS Safety Report 6754506-0 (Version None)
Quarter: 2010Q2

REPORT INFORMATION
  Report Type: 
  Country: None (occurrence: None)
  Receive Date: 20100524
  Receipt Date: 20100318
  Transmission Date: 20101027
  Serious: No
  Sender: FDA-Public Use
  Company Number: 008953

PATIENT
  Sex: Male
  Weight: 319 kg

DRUGS (4)
  1. CIMZIA [Suspect]
     Indication: CROHN'S DISEASE
     Dosage: SUBCUTANEOUS
     Route: 058
     Dates: start: 20100306
  2. PREDNISONE [Concomitant]
  3. VARENICLINE [Concomitant]
  4. VITAMIN B12 (CYANACOBALAMIN AND DERIVATIVES) [Concomitant]

REACTIONS (4)
  - FLUSHING [None]
  - HYPOAESTHESIA [None]
  - PARAESTHESIA [None]
  - VISION BLURRED [None]
